FAERS Safety Report 23638148 (Version 1)
Quarter: 2024Q1

REPORT INFORMATION
  Report Type: Spontaneous
  Country: US (occurrence: US)
  Receive Date: 20240315
  Receipt Date: 20240315
  Transmission Date: 20240410
  Serious: Yes (Death, Other)
  Sender: FDA-Public Use
  Company Number: US-FreseniusKabi-FK202403863

PATIENT
  Sex: Male

DRUGS (3)
  1. OMEGAVEN [Suspect]
     Active Substance: FISH OIL
     Indication: Liver disorder
     Dosage: EMULSION FOR INJECTION
  2. SMOFLIPID [Suspect]
     Active Substance: FISH OIL\MEDIUM-CHAIN TRIGLYCERIDES\OLIVE OIL\SOYBEAN OIL
     Indication: Product used for unknown indication
     Dosage: EMULSION FOR INJECTION
  3. INTRALIPID [Suspect]
     Active Substance: EGG PHOSPHOLIPIDS\GLYCERIN\SOYBEAN OIL
     Indication: Product used for unknown indication
     Dosage: EMULSION FOR INJECTION

REACTIONS (5)
  - Neoplasm malignant [Fatal]
  - Disease complication [Fatal]
  - Hepatic function abnormal [Recovering/Resolving]
  - Condition aggravated [Recovering/Resolving]
  - Off label use [Unknown]
